FAERS Safety Report 4317033-6 (Version None)
Quarter: 2004Q1

REPORT INFORMATION
  Report Type: 
  Country: None (occurrence: None)
  Receive Date: 20040312
  Receipt Date: 20040302
  Transmission Date: 20041129
  Serious: Yes (Other)
  Sender: FDA-Public Use
  Company Number: US-JNJFOC-20031003023

PATIENT
  Age: 82 Year
  Sex: Female
  Weight: 46.2669 kg

DRUGS (5)
  1. REMICADE [Suspect]
     Indication: RHEUMATOID ARTHRITIS
     Dosage: 1 IN 1 DAY, INTRAVENOUS; 300 MG, 1 IN 1 TOTAL, INTRAVENOUS
     Route: 042
     Dates: start: 20000101
  2. REMICADE [Suspect]
     Indication: RHEUMATOID ARTHRITIS
     Dosage: 1 IN 1 DAY, INTRAVENOUS; 300 MG, 1 IN 1 TOTAL, INTRAVENOUS
     Route: 042
     Dates: start: 20030625
  3. METHOTREXATE [Concomitant]
  4. ACTONEL [Concomitant]
  5. BEXTRA [Concomitant]

REACTIONS (4)
  - BRONCHITIS BACTERIAL [None]
  - LUNG INFECTION PSEUDOMONAL [None]
  - PNEUMONIA [None]
  - PULMONARY FIBROSIS [None]
